FAERS Safety Report 26191692 (Version 1)
Quarter: 2025Q4

REPORT INFORMATION
  Report Type: Report from Study
  Country: US (occurrence: US)
  Receive Date: 20251223
  Receipt Date: 20251223
  Transmission Date: 20260117
  Serious: Yes (Death, Hospitalization)
  Sender: OTSUKA
  Company Number: US-MMM-Otsuka-G479FIOT

PATIENT
  Sex: Male

DRUGS (1)
  1. BREXPIPRAZOLE [Suspect]
     Active Substance: BREXPIPRAZOLE
     Indication: Major depression
     Dosage: 3 MG
     Route: 065

REACTIONS (2)
  - Death [Fatal]
  - Insomnia [Unknown]

NARRATIVE: CASE EVENT DATE: 20250101
